FAERS Safety Report 25822953 (Version 2)
Quarter: 2025Q4

REPORT INFORMATION
  Report Type: Spontaneous
  Country: JP (occurrence: JP)
  Receive Date: 20250919
  Receipt Date: 20251029
  Transmission Date: 20260118
  Serious: Yes (Life-Threatening, Hospitalization)
  Sender: MYLAN
  Company Number: JP-MYLANLABS-2025M1078796

PATIENT
  Age: 62 Year
  Sex: Female

DRUGS (8)
  1. REVATIO [Suspect]
     Active Substance: SILDENAFIL CITRATE
     Indication: Right ventricular failure
     Dosage: ON POSTOPERATIVE DAY 10
  2. PREDNISOLONE [Suspect]
     Active Substance: PREDNISOLONE
     Indication: Cardiac failure
  3. HEPARIN [Suspect]
     Active Substance: HEPARIN SODIUM
     Indication: Cardiac ventricular thrombosis
  4. DOBUTAMINE [Suspect]
     Active Substance: DOBUTAMINE HYDROCHLORIDE
     Indication: Cardiac failure
     Dosage: 5 MICROGRAM/KILOGRAM, QMINUTE
  5. DOBUTAMINE [Suspect]
     Active Substance: DOBUTAMINE HYDROCHLORIDE
     Dosage: 5 MICROGRAM/KILOGRAM, QMINUTE
  6. MILRINONE [Suspect]
     Active Substance: MILRINONE
     Indication: Cardiac failure
     Dosage: 0.125 MICROGRAM/KILOGRAM, QMINUTE
  7. MILRINONE [Suspect]
     Active Substance: MILRINONE
     Dosage: 0.125 MICROGRAM/KILOGRAM, QMINUTE
  8. PIMOBENDAN [Suspect]
     Active Substance: PIMOBENDAN
     Indication: Right ventricular failure
     Dosage: ON POSTOPERATIVE DAY 1

REACTIONS (2)
  - Steroid diabetes [Recovering/Resolving]
  - Drug ineffective [Unknown]
